FAERS Safety Report 17293972 (Version 2)
Quarter: 2020Q1

REPORT INFORMATION
  Report Type: Spontaneous
  Country: US (occurrence: US)
  Receive Date: 20200121
  Receipt Date: 20200219
  Transmission Date: 20200409
  Serious: No
  Sender: FDA-Public Use
  Company Number: US-SA-2020SA012572

PATIENT
  Age: 86 Year
  Sex: Female

DRUGS (1)
  1. PRALUENT [Suspect]
     Active Substance: ALIROCUMAB
     Dosage: 75 MG/ML, QOW

REACTIONS (6)
  - Glossodynia [Unknown]
  - Chapped lips [Not Recovered/Not Resolved]
  - Drug dose omission by device [Unknown]
  - Device operational issue [Unknown]
  - Dry skin [Unknown]
  - Unevaluable event [Unknown]

NARRATIVE: CASE EVENT DATE: 20200113
